FAERS Safety Report 21149870 (Version 1)
Quarter: 2022Q3

REPORT INFORMATION
  Report Type: Spontaneous
  Country: US (occurrence: US)
  Receive Date: 20220729
  Receipt Date: 20220729
  Transmission Date: 20221027
  Serious: No
  Sender: FDA-Public Use
  Company Number: US-NOVOPROD-883288

PATIENT
  Sex: Female

DRUGS (1)
  1. OZEMPIC [Suspect]
     Active Substance: SEMAGLUTIDE
     Indication: Product used for unknown indication
     Dosage: 1MG ONCE A WEEK
     Route: 058
     Dates: start: 202111

REACTIONS (3)
  - Stress [Unknown]
  - Drug titration error [Unknown]
  - Wrong technique in product usage process [Unknown]
